FAERS Safety Report 10428324 (Version 1)
Quarter: 2014Q3

REPORT INFORMATION
  Report Type: Spontaneous
  Country: US (occurrence: None)
  Receive Date: 20140829
  Receipt Date: 20140829
  Transmission Date: 20150326
  Serious: Yes (Other)
  Sender: FDA-Public Use
  Company Number: 2014US003618

PATIENT
  Age: 49 Year
  Sex: Male
  Weight: 98 kg

DRUGS (6)
  1. ICLUSIG [Suspect]
     Active Substance: PONATINIB
     Indication: CHROMOSOME ANALYSIS ABNORMAL
     Route: 048
     Dates: start: 201401
  2. DOCUSATE [Concomitant]
     Active Substance: DOCUSATE
  3. OXYCODONE [Concomitant]
     Active Substance: OXYCODONE
  4. ICLUSIG [Suspect]
     Active Substance: PONATINIB
     Indication: ACUTE LYMPHOCYTIC LEUKAEMIA
     Route: 048
     Dates: start: 201401
  5. ACYCLOVIR. [Concomitant]
     Active Substance: ACYCLOVIR
  6. DAPSONE. [Concomitant]
     Active Substance: DAPSONE

REACTIONS (2)
  - Blood creatine phosphokinase increased [None]
  - Myalgia [None]

NARRATIVE: CASE EVENT DATE: 201406
